FAERS Safety Report 20610896 (Version 1)
Quarter: 2022Q1

REPORT INFORMATION
  Report Type: Spontaneous
  Country: US (occurrence: US)
  Receive Date: 20220318
  Receipt Date: 20220318
  Transmission Date: 20220423
  Serious: Yes (Other)
  Sender: FDA-Public Use
  Company Number: US-GLAXOSMITHKLINE-US2022GSK048530

PATIENT
  Sex: Female

DRUGS (7)
  1. ZANTAC [Suspect]
     Active Substance: RANITIDINE HYDROCHLORIDE
     Indication: Hypersensitivity
     Dosage: 75 MG, QD
     Route: 065
     Dates: start: 199004, end: 201909
  2. ZANTAC [Suspect]
     Active Substance: RANITIDINE HYDROCHLORIDE
     Indication: Hypersensitivity
     Dosage: 75 MG, QD
     Route: 065
     Dates: start: 199004, end: 201909
  3. ZANTAC [Suspect]
     Active Substance: RANITIDINE HYDROCHLORIDE
     Indication: Hypersensitivity
     Dosage: 75 MG, QD
     Route: 065
     Dates: start: 199004, end: 201909
  4. RANITIDINE [Suspect]
     Active Substance: RANITIDINE
     Indication: Hypersensitivity
     Dosage: 75 MG, QD
     Route: 065
     Dates: start: 199004, end: 201909
  5. RANITIDINE [Suspect]
     Active Substance: RANITIDINE
     Indication: Hypersensitivity
     Dosage: 75 MG, QD
     Route: 065
     Dates: start: 199004, end: 201909
  6. RANITIDINE [Suspect]
     Active Substance: RANITIDINE
     Indication: Hypersensitivity
     Dosage: 75 MG, QD
     Route: 065
     Dates: start: 199004, end: 201909
  7. RANITIDINE [Suspect]
     Active Substance: RANITIDINE
     Indication: Hypersensitivity
     Dosage: 75 MG, QD
     Route: 065
     Dates: start: 199004, end: 201909

REACTIONS (1)
  - Breast cancer [Unknown]
